FAERS Safety Report 11326379 (Version 1)
Quarter: 2015Q3

REPORT INFORMATION
  Report Type: Spontaneous
  Country: US (occurrence: US)
  Receive Date: 20150731
  Receipt Date: 20150731
  Transmission Date: 20151125
  Serious: Yes (Other)
  Sender: FDA-Public Use
  Company Number: US-TEVA-522294USA

PATIENT
  Age: 24 Year
  Sex: Female
  Weight: 56.75 kg

DRUGS (1)
  1. PLAN B [Suspect]
     Active Substance: LEVONORGESTREL
     Indication: POST COITAL CONTRACEPTION
     Dosage: 1.5 MILLIGRAM DAILY;
     Route: 048
     Dates: start: 200810, end: 200810

REACTIONS (5)
  - Pelvic pain [Recovered/Resolved]
  - Pregnancy after post coital contraception [Recovered/Resolved]
  - Stress [Recovered/Resolved]
  - Normal newborn [Recovered/Resolved]
  - Nausea [Recovered/Resolved]

NARRATIVE: CASE EVENT DATE: 2008
